FAERS Safety Report 4577733-X (Version None)
Quarter: 2005Q1

REPORT INFORMATION
  Report Type: 
  Country: None (occurrence: None)
  Receive Date: 20050131
  Receipt Date: 20050116
  Transmission Date: 20050727
  Serious: Yes (Other)
  Sender: FDA-Public Use
  Company Number: 200510038BBE

PATIENT
  Age: 50 Year
  Sex: Male

DRUGS (2)
  1. PLASMANATE [Suspect]
  2. PLASMA PROTEIN FRACTION (HUMAN) [Suspect]

REACTIONS (2)
  - CENTRAL PONTINE MYELINOLYSIS [None]
  - MARCHIAFAVA-BIGNAMI DISEASE [None]
